FAERS Safety Report 7338286-6 (Version None)
Quarter: 2011Q1

REPORT INFORMATION
  Report Type: 
  Country: None (occurrence: None)
  Receive Date: 20110303
  Receipt Date: 20110303
  Transmission Date: 20110831
  Serious: Yes (Other)
  Sender: FDA-Public Use
  Company Number: None

PATIENT
  Sex: Female
  Weight: 49.8957 kg

DRUGS (2)
  1. CLINDAMYCIN HCL [Suspect]
     Indication: STAPHYLOCOCCAL INFECTION
     Dosage: ONE CAPSULE 300 MG 2 TIMES A DAY PO
     Route: 048
     Dates: start: 20100810, end: 20101020
  2. CLINDAMYCIN HCL [Suspect]
     Indication: SKIN INFECTION
     Dosage: ONE CAPSULE 300 MG 2 TIMES A DAY PO
     Route: 048
     Dates: start: 20100810, end: 20101020

REACTIONS (13)
  - PALLOR [None]
  - DEHYDRATION [None]
  - URINE ODOUR ABNORMAL [None]
  - WEIGHT DECREASED [None]
  - FUNGAL INFECTION [None]
  - CHROMATURIA [None]
  - COLITIS [None]
  - DIARRHOEA [None]
  - ABDOMINAL DISTENSION [None]
  - RASH PRURITIC [None]
  - VULVOVAGINAL MYCOTIC INFECTION [None]
  - ORAL FUNGAL INFECTION [None]
  - SUICIDAL IDEATION [None]
